FAERS Safety Report 16963199 (Version 1)
Quarter: 2019Q4

REPORT INFORMATION
  Report Type: Report from Study
  Country: FR (occurrence: FR)
  Receive Date: 20191025
  Receipt Date: 20191025
  Transmission Date: 20200122
  Serious: Yes (Hospitalization, Other)
  Sender: FDA-Public Use
  Company Number: FR-INTERCEPT-PM2019001775

PATIENT
  Age: 59 Year
  Sex: Female

DRUGS (4)
  1. DELURSAN [Concomitant]
     Active Substance: URSODIOL
     Dosage: 500 MG, 1 EVERY MORNING AND EVENING
     Dates: start: 20120601
  2. OBETICHOLIC ACID [Suspect]
     Active Substance: OBETICHOLIC ACID
     Indication: PRIMARY BILIARY CHOLANGITIS
     Dosage: 5 MG, QD
     Route: 048
     Dates: start: 20170307
  3. UVEDOSE [Concomitant]
     Active Substance: CHOLECALCIFEROL
     Dosage: UNK
     Dates: start: 20170307
  4. ACLASTA [Concomitant]
     Active Substance: ZOLEDRONIC ACID
     Dosage: UNK
     Dates: start: 201712

REACTIONS (18)
  - Pyelonephritis [Recovered/Resolved]
  - Hepatomegaly [Not Recovered/Not Resolved]
  - Diarrhoea [Unknown]
  - Anal incontinence [Unknown]
  - Night sweats [Not Recovered/Not Resolved]
  - Asthenia [Not Recovered/Not Resolved]
  - Splenomegaly [Not Recovered/Not Resolved]
  - Dyspnoea exertional [Unknown]
  - Helicobacter infection [Unknown]
  - Abdominal pain upper [Recovered/Resolved]
  - Sjogren^s syndrome [Not Recovered/Not Resolved]
  - Peptic ulcer [Unknown]
  - Dry eye [Not Recovered/Not Resolved]
  - Erythrosis [Not Recovered/Not Resolved]
  - Reynold^s syndrome [Recovered/Resolved]
  - Portal hypertension [Not Recovered/Not Resolved]
  - Dry mouth [Not Recovered/Not Resolved]
  - Pruritus [Not Recovered/Not Resolved]

NARRATIVE: CASE EVENT DATE: 20180319
